FAERS Safety Report 6771411-4 (Version None)
Quarter: 2010Q2

REPORT INFORMATION
  Report Type: 
  Country: None (occurrence: None)
  Receive Date: 20100614
  Receipt Date: 20100529
  Transmission Date: 20101027
  Serious: Yes (Other)
  Sender: FDA-Public Use
  Company Number: AUR-APL-2010-01426

PATIENT
  Sex: Male

DRUGS (3)
  1. AMOXICILLIN [Suspect]
     Indication: CYSTITIS
  2. PHENOXYMETHYL PENICILLIN [Suspect]
     Indication: CYSTITIS
  3. WARFARIN SODIUM [Suspect]
     Indication: ATRIAL FIBRILLATION

REACTIONS (1)
  - DRUG INEFFECTIVE [None]
